FAERS Safety Report 19007229 (Version 1)
Quarter: 2021Q1

REPORT INFORMATION
  Report Type: Spontaneous
  Country: US (occurrence: US)
  Receive Date: 20210315
  Receipt Date: 20210315
  Transmission Date: 20210420
  Serious: Yes (Other)
  Sender: FDA-Public Use
  Company Number: None

PATIENT
  Age: 74 Year
  Sex: Male
  Weight: 63 kg

DRUGS (1)
  1. TRAZODONE 50MG TABLETS MFG TORRENT [Suspect]
     Active Substance: TRAZODONE HYDROCHLORIDE
     Indication: INSOMNIA
     Dosage: ?          QUANTITY:1 TABLET(S);?
     Route: 048
     Dates: start: 20210313, end: 20210313

REACTIONS (6)
  - Insomnia [None]
  - Heart rate increased [None]
  - Psychomotor hyperactivity [None]
  - Restlessness [None]
  - Abdominal discomfort [None]
  - Feeling abnormal [None]

NARRATIVE: CASE EVENT DATE: 20210313
